FAERS Safety Report 4352285-8 (Version None)
Quarter: 2004Q2

REPORT INFORMATION
  Report Type: 
  Country: None (occurrence: None)
  Receive Date: 20040429
  Receipt Date: 20030520
  Transmission Date: 20050107
  Serious: Yes (Other)
  Sender: FDA-Public Use
  Company Number: 20551

PATIENT
  Age: 55 Year
  Sex: Female

DRUGS (1)
  1. ALDARA [Suspect]
     Indication: BASAL CELL CARCINOMA
     Dosage: (3 IN 1 WEEK(S)), TOPICAL
     Route: 061
     Dates: start: 20021107, end: 20021206

REACTIONS (11)
  - APPLICATION SITE BLEEDING [None]
  - APPLICATION SITE ERYTHEMA [None]
  - APPLICATION SITE IRRITATION [None]
  - APPLICATION SITE OEDEMA [None]
  - CYSTITIS [None]
  - FATIGUE [None]
  - HEADACHE [None]
  - LOCALISED SKIN REACTION [None]
  - LYMPHADENOPATHY [None]
  - SINUS PAIN [None]
  - SKIN HYPERPIGMENTATION [None]
